FAERS Safety Report 19313687 (Version 1)
Quarter: 2021Q2

REPORT INFORMATION
  Report Type: Spontaneous
  Country: US (occurrence: US)
  Receive Date: 20210527
  Receipt Date: 20210527
  Transmission Date: 20210717
  Serious: Yes (Life-Threatening, Hospitalization)
  Sender: FDA-Public Use
  Company Number: None

PATIENT
  Age: 64 Year
  Sex: Male
  Weight: 78.75 kg

DRUGS (8)
  1. HYDROCORTISONE PO [Concomitant]
     Dates: start: 20210518
  2. SEVELAMER [Concomitant]
     Active Substance: SEVELAMER
     Dates: start: 20210511
  3. AMIODARONE [Concomitant]
     Active Substance: AMIODARONE
     Dates: start: 20210511
  4. CEFEPIME [Concomitant]
     Active Substance: CEFEPIME HYDROCHLORIDE
     Dates: start: 20210519
  5. ASPIRIN. [Concomitant]
     Active Substance: ASPIRIN
     Dates: start: 20210511, end: 20210524
  6. ELIQUIS [Suspect]
     Active Substance: APIXABAN
     Indication: ATRIAL FIBRILLATION
     Dates: start: 20210511, end: 20210524
  7. FAMOTIDINE. [Concomitant]
     Active Substance: FAMOTIDINE
     Dates: start: 20210511
  8. OMEPRAZOLE. [Concomitant]
     Active Substance: OMEPRAZOLE
     Dates: start: 20210511

REACTIONS (1)
  - Gastrointestinal haemorrhage [None]

NARRATIVE: CASE EVENT DATE: 20210524
